FAERS Safety Report 18683079 (Version 1)
Quarter: 2020Q4

REPORT INFORMATION
  Report Type: Spontaneous
  Country: FR (occurrence: FR)
  Receive Date: 20201230
  Receipt Date: 20201230
  Transmission Date: 20210114
  Serious: Yes (Hospitalization)
  Sender: FDA-Public Use
  Company Number: FR-TEVA-2020-FR-1862808

PATIENT
  Age: 48 Year
  Sex: Male
  Weight: 92 kg

DRUGS (2)
  1. CISPLATINE [Suspect]
     Active Substance: CISPLATIN
     Indication: TESTIS CANCER
     Dosage: 200MG
     Route: 042
     Dates: start: 20200130, end: 20200322
  2. OXALIPLATINE [Concomitant]
     Active Substance: OXALIPLATIN
     Indication: TESTIS CANCER
     Dosage: 207MG
     Route: 042
     Dates: start: 20200312, end: 20200401

REACTIONS (1)
  - Acute kidney injury [Recovered/Resolved with Sequelae]

NARRATIVE: CASE EVENT DATE: 20200406
